FAERS Safety Report 25657342 (Version 2)
Quarter: 2025Q3

REPORT INFORMATION
  Report Type: Spontaneous
  Country: US (occurrence: US)
  Receive Date: 20250808
  Receipt Date: 20250814
  Transmission Date: 20251020
  Serious: No
  Sender: AMGEN
  Company Number: US-AMGEN-USASP2025155560

PATIENT
  Age: 71 Year
  Sex: Female

DRUGS (1)
  1. REPATHA [Suspect]
     Active Substance: EVOLOCUMAB
     Indication: Product used for unknown indication
     Route: 058
     Dates: start: 202410

REACTIONS (7)
  - Injection site indentation [Unknown]
  - Injection site pain [Unknown]
  - Incorrect disposal of product [Unknown]
  - Incorrect dose administered by device [Unknown]
  - Product dispensing issue [Unknown]
  - Wrong technique in product usage process [Unknown]
  - Device difficult to use [Unknown]

NARRATIVE: CASE EVENT DATE: 20250731
